FAERS Safety Report 14543106 (Version 1)
Quarter: 2018Q1

REPORT INFORMATION
  Report Type: Spontaneous
  Country: BE (occurrence: BE)
  Receive Date: 20180216
  Receipt Date: 20180216
  Transmission Date: 20180509
  Serious: Yes (Hospitalization)
  Sender: FDA-Public Use
  Company Number: BE-ELI_LILLY_AND_COMPANY-BE201802003535

PATIENT
  Age: 61 Year
  Sex: Female

DRUGS (8)
  1. GLUCOPHAGE [Concomitant]
     Active Substance: METFORMIN HYDROCHLORIDE
     Indication: TYPE 2 DIABETES MELLITUS
     Dosage: 1000 MG, DAILY
     Route: 048
  2. SIMVASTATINE [Concomitant]
     Active Substance: SIMVASTATIN
     Indication: HYPERCHOLESTEROLAEMIA
     Dosage: 40 MG, DAILY
     Route: 048
  3. PANTOMED                           /01263204/ [Concomitant]
     Active Substance: PANTOPRAZOLE SODIUM
     Dosage: 40 MG, DAILY
     Route: 048
  4. ZYPADHERA [Suspect]
     Active Substance: OLANZAPINE PAMOATE
     Indication: BIPOLAR I DISORDER
     Dosage: 405 MG, OTHER
     Route: 030
  5. LORMETAZEPAM [Concomitant]
     Active Substance: LORMETAZEPAM
     Indication: BIPOLAR I DISORDER
     Dosage: 2 MG, DAILY
     Route: 048
  6. UNI DIAMICRON [Concomitant]
     Active Substance: GLICLAZIDE
     Indication: TYPE 2 DIABETES MELLITUS
     Dosage: 120 MG, DAILY
     Route: 048
  7. BYDUREON [Concomitant]
     Active Substance: EXENATIDE
     Indication: TYPE 2 DIABETES MELLITUS
     Dosage: 2 MG, WEEKLY (1/W)
     Route: 058
  8. TEMESTA EXPIDET [Concomitant]
     Active Substance: LORAZEPAM
     Dosage: 1 MG, DAILY
     Route: 048

REACTIONS (5)
  - Heart rate increased [Recovered/Resolved]
  - Prescribed overdose [Unknown]
  - Nausea [Recovered/Resolved]
  - Balance disorder [Recovered/Resolved]
  - Confusional state [Recovered/Resolved]

NARRATIVE: CASE EVENT DATE: 20180117
